FAERS Safety Report 11610523 (Version 1)
Quarter: 2015Q4

REPORT INFORMATION
  Report Type: Spontaneous
  Country: US (occurrence: US)
  Receive Date: 20151008
  Receipt Date: 20151008
  Transmission Date: 20160304
  Serious: No
  Sender: FDA-Public Use
  Company Number: US-AMGEN-USASP2015104446

PATIENT
  Age: 69 Year
  Sex: Male

DRUGS (1)
  1. ENBREL [Suspect]
     Active Substance: ETANERCEPT
     Indication: PSORIATIC ARTHROPATHY
     Dosage: UNK
     Route: 065
     Dates: start: 201509

REACTIONS (6)
  - Injection site erythema [Unknown]
  - Injection site warmth [Unknown]
  - Injection site pain [Unknown]
  - Injection site reaction [Unknown]
  - Wrong technique in product usage process [Unknown]
  - Injection site swelling [Unknown]

NARRATIVE: CASE EVENT DATE: 2015
